FAERS Safety Report 7779662-7 (Version None)
Quarter: 2011Q3

REPORT INFORMATION
  Report Type: 
  Country: None (occurrence: None)
  Receive Date: 20110927
  Receipt Date: 20100120
  Transmission Date: 20111222
  Serious: Yes (Other)
  Sender: FDA-Public Use
  Company Number: US-BAYER-200831552NA

PATIENT
  Age: 38 Year
  Sex: Female
  Weight: 76.19 kg

DRUGS (40)
  1. MAGNEVIST [Suspect]
     Indication: NUCLEAR MAGNETIC RESONANCE IMAGING
  2. OMNISCAN [Suspect]
     Indication: VENOGRAM
  3. RENA-VITE [Concomitant]
     Indication: MEDICAL DIET
  4. PROCRIT [Concomitant]
  5. FUROSEMIDE [Concomitant]
  6. REQUIP [Concomitant]
  7. EPOGEN [Concomitant]
  8. PULMICORT [Concomitant]
  9. MYCOPHENOLATE MOFETIL (CELLCEPT) [Concomitant]
  10. OSCAL [Concomitant]
  11. RHINOCORT [Concomitant]
  12. LOVENOX [Concomitant]
  13. MAGNEVIST [Suspect]
     Indication: VENOGRAM
  14. PLAVIX [Concomitant]
  15. OMNISCAN [Suspect]
     Indication: CATHETER PLACEMENT
     Dates: start: 20030828, end: 20030828
  16. FERROUS SULFATE TAB [Concomitant]
     Indication: IRON DEFICIENCY
     Dates: start: 20080101
  17. PREDNISONE [Concomitant]
     Indication: PROPHYLAXIS AGAINST TRANSPLANT REJECTION
     Dates: start: 20060228, end: 20060928
  18. LEXAPRO [Concomitant]
  19. MAGNEVIST [Suspect]
     Indication: CATHETER PLACEMENT
     Dates: start: 20060425, end: 20060425
  20. LISINOPRIL [Concomitant]
  21. TRAZODONE HYDROCHLORIDE [Concomitant]
  22. MOTRIN [Concomitant]
  23. OMNISCAN [Suspect]
     Indication: NUCLEAR MAGNETIC RESONANCE IMAGING
  24. VICODIN [Concomitant]
     Indication: PAIN
  25. PROGRAF [Concomitant]
     Indication: PROPHYLAXIS AGAINST TRANSPLANT REJECTION
     Dates: start: 20060228, end: 20060510
  26. PROGRAF [Concomitant]
  27. WARFARIN SODIUM [Concomitant]
  28. AMLODIPINE [Concomitant]
  29. FOSRENOL [Concomitant]
  30. FLOMAX [Concomitant]
  31. SPIRIVA [Concomitant]
  32. ADVAIR DISKUS 100/50 [Concomitant]
  33. KEPPRA [Concomitant]
  34. NIFEDIPINE [Concomitant]
  35. ASPIRIN [Concomitant]
  36. NORMODYNE [Concomitant]
     Indication: HYPERTENSION
     Dates: start: 20060426
  37. SENSIPAR [Concomitant]
  38. CATAPRES [Concomitant]
  39. XOPENEX [Concomitant]
  40. FOLIC ACID [Concomitant]

REACTIONS (11)
  - NEPHROGENIC SYSTEMIC FIBROSIS [None]
  - INJURY [None]
  - EMOTIONAL DISTRESS [None]
  - ABASIA [None]
  - GENERAL PHYSICAL HEALTH DETERIORATION [None]
  - FIBROSIS [None]
  - PAIN [None]
  - ANXIETY [None]
  - SKIN TIGHTNESS [None]
  - MOBILITY DECREASED [None]
  - SKIN OEDEMA [None]
